FAERS Safety Report 13060129 (Version 2)
Quarter: 2016Q4

REPORT INFORMATION
  Report Type: Report from Study
  Country: JP (occurrence: JP)
  Receive Date: 20161223
  Receipt Date: 20161230
  Transmission Date: 20170207
  Serious: Yes (Death, Hospitalization, Other)
  Sender: FDA-Public Use
  Company Number: JP-BRISTOL-MYERS SQUIBB COMPANY-BMS-2016-109971

PATIENT
  Age: 47 Year
  Sex: Female

DRUGS (1)
  1. ELOTUZUMAB. [Suspect]
     Active Substance: ELOTUZUMAB
     Indication: PLASMA CELL MYELOMA
     Dosage: 460 MG, QWK
     Route: 041
     Dates: start: 20161121

REACTIONS (3)
  - Contusion [Unknown]
  - Fall [Unknown]
  - Cerebral haemorrhage [Fatal]
